FAERS Safety Report 9233255 (Version 1)
Quarter: 2013Q2

REPORT INFORMATION
  Report Type: Spontaneous
  Country: US (occurrence: US)
  Receive Date: 20130416
  Receipt Date: 20130416
  Transmission Date: 20140414
  Serious: No
  Sender: FDA-Public Use
  Company Number: US-BANPHARM-20130648

PATIENT
  Age: 78 Year
  Sex: Female
  Weight: 73.48 kg

DRUGS (6)
  1. ALEVE LIQUID GELS 220MG [Suspect]
     Indication: PAIN
     Dosage: 1 DF, ONCE,
     Route: 048
     Dates: start: 20120228
  2. MECLIZINE [Concomitant]
  3. LEVOTHYROXINE [Concomitant]
  4. VYTORIN [Concomitant]
  5. B COMPLEX VITAMINS [Concomitant]
  6. PANTOPRAZOLE SODIUM [Concomitant]

REACTIONS (1)
  - Somnolence [Recovered/Resolved]
